FAERS Safety Report 7115766-X (Version None)
Quarter: 2010Q4

REPORT INFORMATION
  Report Type: 
  Country: None (occurrence: None)
  Receive Date: 20101122
  Receipt Date: 20101112
  Transmission Date: 20110411
  Serious: Yes (Hospitalization)
  Sender: FDA-Public Use
  Company Number: US-AMGEN-QUU425391

PATIENT

DRUGS (2)
  1. ENBREL [Suspect]
     Indication: RHEUMATOID ARTHRITIS
     Dosage: 25 MG, 2 TIMES/WK
     Route: 058
     Dates: start: 19990101
  2. ENBREL [Suspect]
     Dates: start: 19990101

REACTIONS (9)
  - BACK INJURY [None]
  - FACIAL BONES FRACTURE [None]
  - FALL [None]
  - JOINT INJURY [None]
  - KNEE ARTHROPLASTY [None]
  - LIMB INJURY [None]
  - LOCALISED INFECTION [None]
  - PAIN [None]
  - SKIN LACERATION [None]
